FAERS Safety Report 9140329 (Version 1)
Quarter: 2013Q1

REPORT INFORMATION
  Report Type: Spontaneous
  Country: IT (occurrence: FR)
  Receive Date: 20130305
  Receipt Date: 20130305
  Transmission Date: 20140127
  Serious: Yes (Death)
  Sender: FDA-Public Use
  Company Number: FR-FRI-1000043053

PATIENT
  Sex: Female

DRUGS (15)
  1. NEBIVOLOL [Suspect]
     Indication: CARDIAC FAILURE
     Dosage: 5 MG
     Route: 048
     Dates: start: 20130107, end: 20130108
  2. NEBIVOLOL [Suspect]
     Indication: HYPERTENSION
  3. CELECTOL [Suspect]
     Indication: CARDIAC FAILURE
     Dosage: 200 MG
     Route: 048
     Dates: end: 20130107
  4. CELECTOL [Suspect]
     Indication: HYPERTENSION
  5. HYPERIUM [Concomitant]
     Dosage: 4 MG
  6. AMLOR [Concomitant]
  7. VIRLIX [Concomitant]
  8. INEXIUM [Concomitant]
  9. KENZEN [Concomitant]
  10. LASILIX [Concomitant]
     Dosage: 100 MG
  11. LASILIX [Concomitant]
     Dosage: 120 MG
  12. MOVICOL [Concomitant]
  13. DOLIPRANE [Concomitant]
  14. COSOPT [Concomitant]
  15. HUMALOG MIX [Concomitant]

REACTIONS (5)
  - Bradycardia [Fatal]
  - Accidental overdose [Fatal]
  - Drug administration error [Fatal]
  - Dyspnoea [Fatal]
  - Respiratory acidosis [Fatal]
